FAERS Safety Report 7228476-5 (Version None)
Quarter: 2011Q1

REPORT INFORMATION
  Report Type: 
  Country: None (occurrence: None)
  Receive Date: 20110114
  Receipt Date: 20110110
  Transmission Date: 20110831
  Serious: Yes (Hospitalization)
  Sender: FDA-Public Use
  Company Number: US-US-EMD SERONO, INC.-234031J09USA

PATIENT
  Sex: Female

DRUGS (5)
  1. CYTOXAN [Suspect]
     Indication: MULTIPLE SCLEROSIS
     Route: 065
  2. COPAXONE [Suspect]
     Route: 058
     Dates: start: 20091101
  3. INTRAVENOUS IMMUNOGLOBULIN [Suspect]
     Indication: MULTIPLE SCLEROSIS
     Route: 065
     Dates: end: 20091101
  4. COPAXONE [Suspect]
     Indication: MULTIPLE SCLEROSIS
     Route: 058
     Dates: start: 20091117, end: 20091101
  5. REBIF [Suspect]
     Indication: MULTIPLE SCLEROSIS
     Route: 065
     Dates: end: 20091101

REACTIONS (1)
  - CONVULSION [None]
